FAERS Safety Report 5427676-4 (Version None)
Quarter: 2007Q3

REPORT INFORMATION
  Report Type: 
  Country: None (occurrence: None)
  Receive Date: 20070828
  Receipt Date: 20070817
  Transmission Date: 20080115
  Serious: Yes (Disabling)
  Sender: FDA-Public Use
  Company Number: US-MERCK-0708USA04437

PATIENT
  Age: 65 Year
  Sex: Female

DRUGS (1)
  1. MEVACOR [Suspect]
     Route: 048
     Dates: start: 19800101

REACTIONS (1)
  - POOR PERIPHERAL CIRCULATION [None]
